FAERS Safety Report 23824582 (Version 2)
Quarter: 2024Q2

REPORT INFORMATION
  Report Type: Report from Study
  Country: PT (occurrence: PT)
  Receive Date: 20240507
  Receipt Date: 20240520
  Transmission Date: 20240716
  Serious: Yes (Hospitalization, Other)
  Sender: FDA-Public Use
  Company Number: PT-GILEAD-2024-0671612

PATIENT
  Age: 66 Year
  Sex: Female

DRUGS (2)
  1. SACITUZUMAB GOVITECAN-HZIY [Suspect]
     Active Substance: SACITUZUMAB GOVITECAN-HZIY
     Indication: Triple negative breast cancer
     Dosage: UNK
     Route: 065
     Dates: start: 20221103
  2. SACITUZUMAB GOVITECAN-HZIY [Suspect]
     Active Substance: SACITUZUMAB GOVITECAN-HZIY
     Dosage: UNK
     Route: 065
     Dates: start: 20230223

REACTIONS (17)
  - Metabolic acidosis [Unknown]
  - Acute kidney injury [Unknown]
  - Cellulitis [Unknown]
  - Bacteraemia [Unknown]
  - Device related infection [Unknown]
  - Respiratory failure [Unknown]
  - Hyponatraemia [Unknown]
  - Hypokalaemia [Unknown]
  - Neutropenia [Unknown]
  - Nausea [Unknown]
  - Diarrhoea [Unknown]
  - Mucosal inflammation [Recovering/Resolving]
  - Decreased appetite [Unknown]
  - Alopecia [Unknown]
  - Anaemia [Unknown]
  - Urinary tract infection [Unknown]
  - Asthenia [Unknown]
